FAERS Safety Report 25552240 (Version 1)
Quarter: 2025Q3

REPORT INFORMATION
  Report Type: Spontaneous
  Country: US (occurrence: US)
  Receive Date: 20250715
  Receipt Date: 20250715
  Transmission Date: 20251020
  Serious: No
  Sender: RECKITT BENCKISER
  Company Number: US-PROD-AS2-212756134-20-25-USA-RB-0001841

PATIENT
  Age: 63 Year
  Sex: Female
  Weight: 61.235 kg

DRUGS (1)
  1. MUCINEX D [Suspect]
     Active Substance: GUAIFENESIN\PSEUDOEPHEDRINE HYDROCHLORIDE
     Indication: Product used for unknown indication
     Route: 048
     Dates: start: 20250131, end: 20250204

REACTIONS (5)
  - Oropharyngeal discomfort [Recovered/Resolved]
  - Vomiting [Recovered/Resolved]
  - Abdominal discomfort [Recovered/Resolved]
  - Product use complaint [Recovered/Resolved]
  - Product size issue [Recovered/Resolved]

NARRATIVE: CASE EVENT DATE: 20250204
